FAERS Safety Report 22067433 (Version 1)
Quarter: 2023Q1

REPORT INFORMATION
  Report Type: Spontaneous
  Country: IT (occurrence: IT)
  Receive Date: 20230307
  Receipt Date: 20230307
  Transmission Date: 20230418
  Serious: Yes (Other)
  Sender: FDA-Public Use
  Company Number: IT-MINISAL02-911003

PATIENT
  Age: 31 Year
  Sex: Female

DRUGS (2)
  1. ACETAMINOPHEN [Suspect]
     Active Substance: ACETAMINOPHEN
     Indication: Pain
     Dosage: 1 DOSAGE FORM
     Route: 042
     Dates: start: 20230131, end: 20230131
  2. KETAMINE [Suspect]
     Active Substance: KETAMINE
     Indication: Pain
     Dosage: 1 DOSAGE FORM (1 VIAL IN 100 CC OF PHYSIOLOGICAL SOLUTION)
     Route: 042
     Dates: start: 20230131, end: 20230131

REACTIONS (1)
  - Hypertransaminasaemia [Recovered/Resolved]

NARRATIVE: CASE EVENT DATE: 20230131
